FAERS Safety Report 10027709 (Version 5)
Quarter: 2015Q1

REPORT INFORMATION
  Report Type: Report from Study
  Country: CA (occurrence: CA)
  Receive Date: 20140321
  Receipt Date: 20150107
  Transmission Date: 20150720
  Serious: Yes (Death, Hospitalization, Other)
  Sender: FDA-Public Use
  Company Number: CA-ABBVIE-14P-028-1213301-00

PATIENT
  Age: 85 Year
  Sex: Male
  Weight: 90.8 kg

DRUGS (1)
  1. LUPRON DEPOT [Suspect]
     Active Substance: LEUPROLIDE ACETATE
     Indication: PROSTATE CANCER
     Route: 030
     Dates: start: 20130621, end: 20140321

REACTIONS (5)
  - Renal impairment [Fatal]
  - Blood glucose abnormal [Fatal]
  - Delirium [Fatal]
  - Blood pressure decreased [Fatal]
  - Disease complication [Fatal]

NARRATIVE: CASE EVENT DATE: 20140305
